FAERS Safety Report 4738416-6 (Version None)
Quarter: 2005Q3

REPORT INFORMATION
  Report Type: 
  Country: None (occurrence: None)
  Receive Date: 20050803
  Receipt Date: 20050720
  Transmission Date: 20060218
  Serious: Yes (Other)
  Sender: FDA-Public Use
  Company Number: 2005105820

PATIENT
  Sex: Male

DRUGS (1)
  1. ALOSTIL 2% (MINOXIDIL) [Suspect]
     Indication: ALOPECIA
     Dosage: UNSPECIFIED, TOPICAL
     Route: 061
     Dates: start: 20030101, end: 20050601

REACTIONS (1)
  - OPTIC NEURITIS [None]
